FAERS Safety Report 23427930 (Version 3)
Quarter: 2024Q1

REPORT INFORMATION
  Report Type: Spontaneous
  Country: US (occurrence: US)
  Receive Date: 20240122
  Receipt Date: 20240307
  Transmission Date: 20240410
  Serious: No
  Sender: FDA-Public Use
  Company Number: US-PFIZER INC-PV202300163159

PATIENT
  Age: 84 Year
  Sex: Female

DRUGS (1)
  1. XELJANZ XR [Suspect]
     Active Substance: TOFACITINIB CITRATE
     Dosage: 1 TABLET DAILY

REACTIONS (6)
  - Joint swelling [Unknown]
  - Muscular weakness [Unknown]
  - Pain in extremity [Unknown]
  - Arthralgia [Unknown]
  - Synovial cyst [Unknown]
  - Pain [Unknown]
